FAERS Safety Report 16972204 (Version 4)
Quarter: 2021Q2

REPORT INFORMATION
  Report Type: Report from Study
  Country: JP (occurrence: JP)
  Receive Date: 20191029
  Receipt Date: 20210617
  Transmission Date: 20210716
  Serious: Yes (Death, Life-Threatening, Hospitalization, Other)
  Sender: FDA-Public Use
  Company Number: JP-009507513-1910JPN003466J

PATIENT
  Age: 6 Decade
  Sex: Female
  Weight: 39 kg

DRUGS (1)
  1. PEMBROLIZUMAB. [Suspect]
     Active Substance: PEMBROLIZUMAB
     Indication: ENDOMETRIAL CANCER STAGE IV
     Dosage: 200 MILLIGRAM/DOSE
     Route: 041
     Dates: start: 20190910, end: 20191001

REACTIONS (4)
  - Basal ganglia haemorrhage [Fatal]
  - Brain death [Fatal]
  - Sepsis [Not Recovered/Not Resolved]
  - Pneumonia aspiration [Unknown]

NARRATIVE: CASE EVENT DATE: 2019
